FAERS Safety Report 7223833-5 (Version None)
Quarter: 2011Q1

REPORT INFORMATION
  Report Type: 
  Country: None (occurrence: None)
  Receive Date: 20110112
  Receipt Date: 20101220
  Transmission Date: 20110831
  Serious: No
  Sender: FDA-Public Use
  Company Number: US-ALLERGAN-1016547US

PATIENT
  Sex: Female

DRUGS (2)
  1. RESTASIS [Suspect]
     Indication: VISUAL IMPAIRMENT
     Dosage: 1 GTT, BID
     Route: 047
     Dates: end: 20101219
  2. LOTEMAX [Concomitant]
     Indication: PRODUCT USED FOR UNKNOWN INDICATION
     Dosage: 1 GTT, BID

REACTIONS (2)
  - DYSPNOEA [None]
  - OXYGEN CONSUMPTION INCREASED [None]
